FAERS Safety Report 4404771-X (Version None)
Quarter: 2004Q3

REPORT INFORMATION
  Report Type: 
  Country: None (occurrence: None)
  Receive Date: 20040720
  Receipt Date: 20040713
  Transmission Date: 20050211
  Serious: Yes (Other)
  Sender: FDA-Public Use
  Company Number: 374029

PATIENT
  Age: 32 Year
  Sex: Male

DRUGS (1)
  1. ACITRETIN (ACITRETIN) [Suspect]
     Indication: PSORIASIS
     Dosage: 30 MG DAILY

REACTIONS (2)
  - MACULAR OEDEMA [None]
  - MACULOPATHY [None]
